FAERS Safety Report 13019102 (Version 1)
Quarter: 2016Q4

REPORT INFORMATION
  Report Type: Spontaneous
  Country: US (occurrence: US)
  Receive Date: 20161212
  Receipt Date: 20161212
  Transmission Date: 20170207
  Serious: No
  Sender: FDA-Public Use
  Company Number: US-ROCHE-1771862

PATIENT

DRUGS (16)
  1. LIPITOR [Suspect]
     Active Substance: ATORVASTATIN CALCIUM
     Indication: MYALGIA
     Route: 065
  2. CHOLECALCIFEROL [Concomitant]
     Active Substance: CHOLECALCIFEROL
     Dosage: OVER THE COUNTER PRODUCT, 1000 UNIT, 3 REFILLS
     Route: 048
     Dates: start: 20150706
  3. HYDRODIURIL [Concomitant]
     Active Substance: HYDROCHLOROTHIAZIDE
     Dosage: ONCE A DAY AS NEEDED, 1 REFILL, 90 TABLETS
     Route: 048
     Dates: start: 20150422
  4. ZITHROMAX [Suspect]
     Active Substance: AZITHROMYCIN DIHYDRATE
     Indication: PRODUCT USED FOR UNKNOWN INDICATION
     Dosage: 2 TABLETS FOR THE FIRST DAY AND ONE TABLET DAILY AFTERWARDS FOR A TOTAL OF 5 DAYS AS DIRECTED IN THE
     Route: 048
     Dates: start: 20160118
  5. FLEXERIL [Concomitant]
     Active Substance: CYCLOBENZAPRINE HYDROCHLORIDE
     Indication: MUSCLE SPASMS
     Dosage: 30 TABLETS, 2 REFILLS, 1 TABLET BY MOUTH 3 TIMES A DAY AS NEEDED
     Route: 048
     Dates: start: 20160125
  6. LANCETS [Concomitant]
     Active Substance: DEVICE
     Dosage: 1 EACH BY OTHER ROUTE DAILY USE AS INSTRUCTED, 1 BOX, 3 REFILLS
     Route: 065
     Dates: start: 20140805
  7. SYNTHROID [Concomitant]
     Active Substance: LEVOTHYROXINE SODIUM
     Route: 048
  8. VALIUM [Suspect]
     Active Substance: DIAZEPAM
     Indication: PRODUCT USED FOR UNKNOWN INDICATION
     Route: 065
  9. CELEXA [Concomitant]
     Active Substance: CITALOPRAM HYDROBROMIDE
     Dosage: HALF A DAY, OVER THE COUNTER PRODUCT, 30 TABLETS, O REFILLS
     Route: 048
     Dates: start: 20150827
  10. VITAMIN B12 [Concomitant]
     Active Substance: CYANOCOBALAMIN
     Dosage: 1 CUBIC CENTIMETER TWICE A MONTH, 3 REFILLS, 1000 MCG/ML
     Route: 065
     Dates: start: 20150706
  11. COMBIVENT RESPIMAT [Concomitant]
     Active Substance: ALBUTEROL SULFATE\IPRATROPIUM BROMIDE
     Dosage: 20 TO 100 MCG OR ACTUATION INHALER, 3 PUFFS 4 TIMES A DAY AS NEEDED, 2 REFILLS
     Route: 065
     Dates: start: 20150213
  12. AMPICILLIN [Concomitant]
     Active Substance: AMPICILLIN
  13. BACTRIM [Concomitant]
     Active Substance: SULFAMETHOXAZOLE\TRIMETHOPRIM
     Route: 065
  14. PERCOCET [Concomitant]
     Active Substance: ACETAMINOPHEN\OXYCODONE HYDROCHLORIDE
  15. AUGMENTIN [Concomitant]
     Active Substance: AMOXICILLIN\CLAVULANATE POTASSIUM
     Indication: URTICARIA
     Route: 065
     Dates: start: 20160215
  16. CELEBREX [Suspect]
     Active Substance: CELECOXIB
     Indication: PRODUCT USED FOR UNKNOWN INDICATION
     Dosage: 90 CAPSULES, ONE CAPSULE BY MOUTH DAILY, 1 REFILL.
     Route: 048
     Dates: start: 20160211

REACTIONS (1)
  - Rash [Unknown]
